FAERS Safety Report 8603430-7 (Version None)
Quarter: 2012Q3

REPORT INFORMATION
  Report Type: 
  Country: None (occurrence: None)
  Receive Date: 20120817
  Receipt Date: 20120813
  Transmission Date: 20120928
  Serious: Yes (Other)
  Sender: FDA-Public Use
  Company Number: US-PFIZER INC-2012032392

PATIENT
  Age: 69 Year
  Sex: Male
  Weight: 68.027 kg

DRUGS (6)
  1. DILANTIN [Suspect]
     Indication: CONVULSION
     Dosage: 100 MG, 3X/DAY
     Route: 048
     Dates: start: 19560101
  2. PHENOBARBITAL TAB [Suspect]
     Dosage: UNK
     Dates: start: 19610101
  3. PHENYTOIN SODIUM [Suspect]
     Dosage: UNK
     Dates: start: 19610101
  4. PHENYTOIN SODIUM [Suspect]
     Indication: CONVULSION
     Dosage: 100 MG, UNK
     Route: 048
     Dates: start: 19560101
  5. PHENOBARBITAL TAB [Suspect]
     Dosage: UNK, 3X/DAY (1 1/2 GRAIN TID)
     Dates: start: 19560101
  6. DILANTIN [Suspect]
     Dosage: UNK
     Route: 048
     Dates: start: 19610101

REACTIONS (3)
  - SMOKE SENSITIVITY [None]
  - DRUG INEFFECTIVE [None]
  - GRAND MAL CONVULSION [None]
